FAERS Safety Report 7185340-8 (Version None)
Quarter: 2010Q4

REPORT INFORMATION
  Report Type: 
  Country: None (occurrence: None)
  Receive Date: 20101222
  Receipt Date: 20100602
  Transmission Date: 20110411
  Serious: No
  Sender: FDA-Public Use
  Company Number: US-AMGEN-TCS416101

PATIENT

DRUGS (10)
  1. ENBREL [Suspect]
     Indication: PSORIASIS
     Dosage: 50 MG, 2 TIMES/WK
     Route: 058
     Dates: start: 20070201
  2. LOTREL [Concomitant]
  3. LEVOTHYROXINE SODIUM [Concomitant]
  4. ESCITALOPRAM [Concomitant]
  5. ACETYLSALICYLIC ACID [Concomitant]
  6. LOVASTATIN [Concomitant]
  7. VALSARTAN [Concomitant]
  8. CETIRIZINE HYDROCHLORIDE [Concomitant]
  9. FISH OIL [Concomitant]
  10. CALCIUM [Concomitant]

REACTIONS (1)
  - HAEMOCHROMATOSIS [None]
